FAERS Safety Report 19922166 (Version 4)
Quarter: 2022Q3

REPORT INFORMATION
  Report Type: Report from Study
  Country: US (occurrence: US)
  Receive Date: 20211005
  Receipt Date: 20220905
  Transmission Date: 20221027
  Serious: No
  Sender: FDA-Public Use
  Company Number: US-NOVARTISTESTPH-NVSC2021US226599

PATIENT
  Age: 45 Year
  Sex: Male

DRUGS (3)
  1. KESIMPTA [Suspect]
     Active Substance: OFATUMUMAB
     Indication: Multiple sclerosis
     Dosage: 20 MG, QW (BENEATH THE SKIN, USUALLY VIA INJECTION)
     Route: 058
     Dates: start: 20210924
  2. KESIMPTA [Suspect]
     Active Substance: OFATUMUMAB
     Dosage: 20 MG, QMO
     Route: 058
     Dates: start: 20210924
  3. KESIMPTA [Suspect]
     Active Substance: OFATUMUMAB
     Dosage: UNK UNK, QMO
     Route: 058

REACTIONS (8)
  - Influenza like illness [Recovered/Resolved]
  - Chills [Recovered/Resolved]
  - Headache [Recovered/Resolved]
  - Hypoaesthesia [Not Recovered/Not Resolved]
  - COVID-19 [Recovering/Resolving]
  - Pain [Unknown]
  - Fatigue [Unknown]
  - Respiratory tract congestion [Unknown]

NARRATIVE: CASE EVENT DATE: 20210924
